FAERS Safety Report 6374193-3 (Version None)
Quarter: 2009Q3

REPORT INFORMATION
  Report Type: 
  Country: None (occurrence: None)
  Receive Date: 20090924
  Receipt Date: 20090618
  Transmission Date: 20100115
  Serious: No
  Sender: FDA-Public Use
  Company Number: US-ASTRAZENECA-2009UW15869

PATIENT
  Age: 52 Year
  Sex: Female
  Weight: 54.4 kg

DRUGS (4)
  1. SEROQUEL XR [Suspect]
     Route: 048
  2. ROPINIROLE [Concomitant]
  3. SIMVASTATIN [Concomitant]
  4. VITAMINS [Concomitant]

REACTIONS (2)
  - ABDOMINAL PAIN UPPER [None]
  - CRYING [None]
